FAERS Safety Report 13040211 (Version 1)
Quarter: 2016Q4

REPORT INFORMATION
  Report Type: Report from Study
  Country: CO (occurrence: CO)
  Receive Date: 20161219
  Receipt Date: 20161219
  Transmission Date: 20170207
  Serious: Yes (Hospitalization)
  Sender: FDA-Public Use
  Company Number: CO-JNJFOC-20161212619

PATIENT
  Age: 20 Year
  Sex: Male
  Weight: 70 kg

DRUGS (1)
  1. RISPERDAL CONSTA [Suspect]
     Active Substance: RISPERIDONE
     Indication: SCHIZOPHRENIA
     Route: 030
     Dates: start: 20151126

REACTIONS (4)
  - Anxiety [Recovering/Resolving]
  - Aggression [Recovering/Resolving]
  - Treatment noncompliance [Unknown]
  - Staring [Recovering/Resolving]

NARRATIVE: CASE EVENT DATE: 20161116
